FAERS Safety Report 20486506 (Version 2)
Quarter: 2022Q1

REPORT INFORMATION
  Report Type: Spontaneous
  Country: US (occurrence: US)
  Receive Date: 20220217
  Receipt Date: 20220323
  Transmission Date: 20220423
  Serious: No
  Sender: FDA-Public Use
  Company Number: US-JNJFOC-20220233347

PATIENT
  Age: 75 Year
  Sex: Female
  Weight: 55.842 kg

DRUGS (9)
  1. RISPERDAL CONSTA [Interacting]
     Active Substance: RISPERIDONE
     Indication: Bipolar disorder
     Route: 030
     Dates: start: 202202
  2. RISPERDAL CONSTA [Interacting]
     Active Substance: RISPERIDONE
  3. RISPERDAL CONSTA [Interacting]
     Active Substance: RISPERIDONE
  4. RISPERDAL CONSTA [Interacting]
     Active Substance: RISPERIDONE
  5. CYMBALTA [Interacting]
     Active Substance: DULOXETINE HYDROCHLORIDE
     Indication: Product used for unknown indication
     Route: 065
  6. HUMIRA [Interacting]
     Active Substance: ADALIMUMAB
     Indication: Product used for unknown indication
     Dates: start: 202202
  7. NORVASC [Concomitant]
     Active Substance: AMLODIPINE BESYLATE
     Indication: Blood pressure measurement
  8. PEPCID [Concomitant]
     Active Substance: FAMOTIDINE
     Indication: Gastric disorder
  9. XANAX [Concomitant]
     Active Substance: ALPRAZOLAM

REACTIONS (14)
  - Injection site pain [Unknown]
  - Gastric disorder [Unknown]
  - Drug interaction [Unknown]
  - Dry throat [Unknown]
  - Dysphagia [Unknown]
  - Paraesthesia oral [Unknown]
  - Hypoaesthesia [Unknown]
  - Bedridden [Unknown]
  - Heart rate increased [Unknown]
  - Tremor [Unknown]
  - Blood cholesterol increased [Unknown]
  - Treatment noncompliance [Unknown]
  - Nasal congestion [Unknown]
  - Sinusitis [Unknown]

NARRATIVE: CASE EVENT DATE: 20220201
